FAERS Safety Report 13612302 (Version 1)
Quarter: 2017Q2

REPORT INFORMATION
  Report Type: Spontaneous
  Country: US (occurrence: US)
  Receive Date: 20170605
  Receipt Date: 20170605
  Transmission Date: 20170830
  Serious: Yes (Other)
  Sender: FDA-Public Use
  Company Number: US-PFIZER INC-2015410266

PATIENT
  Age: 38 Year
  Sex: Male
  Weight: 165.1 kg

DRUGS (1)
  1. CYTARABINE. [Suspect]
     Active Substance: CYTARABINE
     Dosage: UNK (HIGH DOSE)

REACTIONS (1)
  - Neurotoxicity [Unknown]
